FAERS Safety Report 19500230 (Version 1)
Quarter: 2021Q3

REPORT INFORMATION
  Report Type: Spontaneous
  Country: US (occurrence: US)
  Receive Date: 20210707
  Receipt Date: 20210707
  Transmission Date: 20211014
  Serious: Yes (Other)
  Sender: FDA-Public Use
  Company Number: US-SA-2021SA220900

PATIENT
  Age: 57 Year
  Sex: Male

DRUGS (3)
  1. ZANTAC [Suspect]
     Active Substance: RANITIDINE HYDROCHLORIDE
     Indication: DYSPEPSIA
     Dosage: UNK, QD
     Dates: start: 198810, end: 200301
  2. ZANTAC [Suspect]
     Active Substance: RANITIDINE HYDROCHLORIDE
     Indication: ABDOMINAL DISCOMFORT
  3. ZANTAC [Suspect]
     Active Substance: RANITIDINE HYDROCHLORIDE
     Indication: HYPERCHLORHYDRIA

REACTIONS (6)
  - Renal cancer stage IV [Recovering/Resolving]
  - Testis cancer [Recovering/Resolving]
  - Gastrointestinal carcinoma [Recovering/Resolving]
  - Colorectal cancer stage IV [Unknown]
  - Small intestine carcinoma stage IV [Recovering/Resolving]
  - Bladder cancer stage IV [Unknown]

NARRATIVE: CASE EVENT DATE: 20080101
